FAERS Safety Report 10070934 (Version 1)
Quarter: 2014Q2

REPORT INFORMATION
  Report Type: Spontaneous
  Country: CA (occurrence: CA)
  Receive Date: 20140410
  Receipt Date: 20140410
  Transmission Date: 20141212
  Serious: Yes (Other)
  Sender: FDA-Public Use
  Company Number: PHHY2014CA039844

PATIENT
  Age: 77 Year
  Sex: Female

DRUGS (4)
  1. LATANOPROST+TIMOLOL SANDOZ [Suspect]
     Dosage: 1 DRP, QD
     Route: 047
  2. AZOPT [Concomitant]
  3. FOSAVANCE [Concomitant]
  4. RATIO-BRIMONIDINE [Concomitant]

REACTIONS (2)
  - Burning sensation [Recovered/Resolved]
  - Product substitution issue [Recovered/Resolved]
